FAERS Safety Report 20356215 (Version 2)
Quarter: 2022Q1

REPORT INFORMATION
  Report Type: Spontaneous
  Country: US (occurrence: US)
  Receive Date: 20220120
  Receipt Date: 20220222
  Transmission Date: 20220424
  Serious: Yes (Hospitalization)
  Sender: FDA-Public Use
  Company Number: US-XERIS PHARMACEUTICALS-2022XER00015

PATIENT
  Age: 39 Year
  Sex: Male
  Weight: 45.351 kg

DRUGS (2)
  1. GVOKE [Suspect]
     Active Substance: GLUCAGON
     Indication: Hypoglycaemia
     Dosage: 0.5 MG, IN THE LEFT THIGH (PROBABLY ABOUT 2 INCHES BEFOW THE MIDPOINT), ONCE
     Route: 058
     Dates: start: 20220101
  2. NPH INSULIN [Concomitant]
     Active Substance: INSULIN BEEF

REACTIONS (6)
  - Hypoglycaemia [Recovered/Resolved]
  - Fatigue [Unknown]
  - Drug ineffective [Recovered/Resolved]
  - Incorrect dose administered by device [Not Recovered/Not Resolved]
  - Product label confusion [Not Recovered/Not Resolved]
  - Product administration error [Recovered/Resolved]

NARRATIVE: CASE EVENT DATE: 20220101
